FAERS Safety Report 6438628-X (Version None)
Quarter: 2009Q4

REPORT INFORMATION
  Report Type: 
  Country: None (occurrence: None)
  Receive Date: 20091110
  Receipt Date: 20090814
  Transmission Date: 20100525
  Serious: Yes (Other)
  Sender: FDA-Public Use
  Company Number: 2009AP003351

PATIENT
  Age: 83 Year
  Sex: Male

DRUGS (1)
  1. AMIODARONE HCL [Suspect]
     Indication: ATRIAL FIBRILLATION
     Dosage: 200 MG;

REACTIONS (3)
  - ATAXIA [None]
  - NEUROPATHY PERIPHERAL [None]
  - NEUROTOXICITY [None]
